FAERS Safety Report 4624912-9 (Version None)
Quarter: 2005Q2

REPORT INFORMATION
  Report Type: 
  Country: None (occurrence: None)
  Receive Date: 20050401
  Receipt Date: 20050323
  Transmission Date: 20051028
  Serious: Yes (Hospitalization, Other)
  Sender: FDA-Public Use
  Company Number: 200510897JP

PATIENT
  Age: 73 Year
  Sex: Male

DRUGS (7)
  1. ARAVA [Suspect]
     Indication: RHEUMATOID ARTHRITIS
     Route: 048
     Dates: start: 20031220, end: 20040127
  2. RELIFEN [Concomitant]
     Indication: PAIN
     Route: 048
     Dates: end: 20031219
  3. HYPEN [Concomitant]
     Indication: PAIN
     Route: 048
     Dates: start: 20031220
  4. MUCOSTA [Concomitant]
     Indication: PROPHYLAXIS
     Route: 048
     Dates: start: 20020611
  5. PREDNISOLONE [Concomitant]
     Indication: INFLAMMATION
     Route: 048
     Dates: start: 20030519
  6. NEORAL [Concomitant]
     Indication: RHEUMATOID ARTHRITIS
     Route: 048
     Dates: start: 20030701, end: 20031219
  7. FARNERATE [Concomitant]
     Indication: INFLAMMATION
     Route: 003
     Dates: start: 20031114

REACTIONS (8)
  - ALANINE AMINOTRANSFERASE INCREASED [None]
  - BLOOD ALKALINE PHOSPHATASE INCREASED [None]
  - BLOOD LACTATE DEHYDROGENASE INCREASED [None]
  - GAMMA-GLUTAMYLTRANSFERASE INCREASED [None]
  - GASTRIC CANCER [None]
  - GLUCOSE URINE PRESENT [None]
  - HEPATIC FUNCTION ABNORMAL [None]
  - PROTEIN URINE PRESENT [None]
